FAERS Safety Report 16329409 (Version 1)
Quarter: 2019Q2

REPORT INFORMATION
  Report Type: Spontaneous
  Country: GB (occurrence: GB)
  Receive Date: 20190520
  Receipt Date: 20190520
  Transmission Date: 20190711
  Serious: Yes (Hospitalization)
  Sender: FDA-Public Use
  Company Number: GB-CONCORDIA PHARMACEUTICALS INC.-E2B_00019781

PATIENT
  Age: 80 Year
  Sex: Female

DRUGS (7)
  1. FUROSEMIDE. [Concomitant]
     Active Substance: FUROSEMIDE
  2. LOSARTAN. [Concomitant]
     Active Substance: LOSARTAN
  3. DIGOXIN. [Suspect]
     Active Substance: DIGOXIN
  4. WARFARIN [Concomitant]
     Active Substance: WARFARIN
  5. CARBOCISTEINE [Concomitant]
     Active Substance: CARBOCYSTEINE
  6. RANITIDINE. [Concomitant]
     Active Substance: RANITIDINE
  7. METFORMIN [Concomitant]
     Active Substance: METFORMIN HYDROCHLORIDE

REACTIONS (3)
  - Acute kidney injury [Unknown]
  - Stoma site discharge [Unknown]
  - Toxicity to various agents [Not Recovered/Not Resolved]

NARRATIVE: CASE EVENT DATE: 20180227
